FAERS Safety Report 16965381 (Version 2)
Quarter: 2020Q1

REPORT INFORMATION
  Report Type: Report from Study
  Country: US (occurrence: US)
  Receive Date: 20191028
  Receipt Date: 20200114
  Transmission Date: 20200409
  Serious: Yes (Hospitalization)
  Sender: FDA-Public Use
  Company Number: US-MALLINCKRODT-T201903360

PATIENT
  Age: 67 Year
  Sex: Female

DRUGS (5)
  1. REPOSITORY CORTICOTROPIN INJECTION [Suspect]
     Active Substance: CORTICOTROPIN
     Indication: SYSTEMIC LUPUS ERYTHEMATOSUS
     Dosage: 80 UNITS/1 ML, TWICE WEEKLY, MONDAY/THURSDAY
     Route: 058
     Dates: start: 20180412
  2. REPOSITORY CORTICOTROPIN INJECTION [Suspect]
     Active Substance: CORTICOTROPIN
     Dosage: 0.5 MILLILITER, QW(MONDAY)
     Route: 058
     Dates: start: 2018
  3. MORPHINE [Suspect]
     Active Substance: MORPHINE
     Indication: PAIN
     Dosage: UNK
     Route: 065
     Dates: start: 201905
  4. INSULIN [Concomitant]
     Active Substance: INSULIN NOS
     Indication: DIABETES MELLITUS
     Dosage: UNK
     Route: 065
  5. REPOSITORY CORTICOTROPIN INJECTION [Suspect]
     Active Substance: CORTICOTROPIN
     Dosage: 40 UNITS 0.5 MILLILITER, QW(MONDAY)
     Route: 058

REACTIONS (17)
  - Fall [Unknown]
  - Amnesia [Not Recovered/Not Resolved]
  - Pain [Unknown]
  - Skin discolouration [Unknown]
  - Confusional state [Unknown]
  - Feeling abnormal [Unknown]
  - Head injury [Unknown]
  - Nocturia [Unknown]
  - Drug ineffective [Unknown]
  - Gait disturbance [Unknown]
  - Impaired driving ability [Not Recovered/Not Resolved]
  - Cerebral haemorrhage [Unknown]
  - Accident at home [Unknown]
  - Multiple sclerosis relapse [Unknown]
  - Contusion [Not Recovered/Not Resolved]
  - Back injury [Unknown]
  - Ear discomfort [Not Recovered/Not Resolved]

NARRATIVE: CASE EVENT DATE: 201905
